FAERS Safety Report 7418152-8 (Version None)
Quarter: 2011Q2

REPORT INFORMATION
  Report Type: 
  Country: None (occurrence: None)
  Receive Date: 20110415
  Receipt Date: 20110401
  Transmission Date: 20111010
  Serious: Yes (Other)
  Sender: FDA-Public Use
  Company Number: US-WATSON-2011-05124

PATIENT

DRUGS (1)
  1. AMPICILLIN SODIUM [Suspect]
     Indication: ANTIBIOTIC PROPHYLAXIS
     Dosage: MORE THAN 10 DOSES
     Route: 042

REACTIONS (1)
  - BLEEDING TIME PROLONGED [None]
